FAERS Safety Report 9645609 (Version 2)
Quarter: 2013Q4

REPORT INFORMATION
  Report Type: Spontaneous
  Country: US (occurrence: US)
  Receive Date: 20131025
  Receipt Date: 20131118
  Transmission Date: 20140711
  Serious: Yes (Congenital Anomaly, Other)
  Sender: FDA-Public Use
  Company Number: US-PFIZER INC-2013304447

PATIENT
  Sex: Female

DRUGS (16)
  1. ZOLOFT [Suspect]
     Dosage: UNK
     Route: 064
     Dates: start: 2002
  2. TYLENOL [Concomitant]
     Dosage: UNK
     Route: 064
  3. IBUPROFEN [Concomitant]
     Dosage: UNK
     Route: 064
  4. PRENATAL VITAMINS [Concomitant]
     Dosage: UNK
     Route: 064
  5. LEVAQUIN [Concomitant]
     Dosage: UNK
     Route: 064
  6. WELLBUTRIN [Concomitant]
     Dosage: UNK
     Route: 064
  7. EFFEXOR [Concomitant]
     Dosage: UNK
     Route: 064
  8. PROMETHAZINE [Concomitant]
     Dosage: UNK
     Route: 064
  9. TEMAZEPAM [Concomitant]
     Dosage: UNK
     Route: 064
  10. AMOXICILLIN [Concomitant]
     Dosage: UNK
     Route: 064
  11. HYDROCODONE [Concomitant]
     Dosage: UNK
     Route: 064
  12. TRAZO-DONE [Concomitant]
     Dosage: UNK
     Route: 064
  13. GABITRIL [Concomitant]
     Dosage: UNK
     Route: 064
  14. PHENERGAN [Concomitant]
     Dosage: UNK
     Route: 064
  15. PROZAC [Concomitant]
     Dosage: UNK
     Route: 064
  16. IRON [Concomitant]
     Dosage: PILLS
     Route: 064

REACTIONS (6)
  - Maternal exposure during pregnancy [Unknown]
  - Ventricular septal defect [Unknown]
  - Patent ductus arteriosus [Unknown]
  - Persistent foetal circulation [Unknown]
  - Atrial septal defect [Unknown]
  - Congenital anomaly [Unknown]
